FAERS Safety Report 14730620 (Version 1)
Quarter: 2018Q2

REPORT INFORMATION
  Report Type: Spontaneous
  Country: US (occurrence: US)
  Receive Date: 20180402
  Receipt Date: 20180402
  Transmission Date: 20180711
  Serious: Yes (Other)
  Sender: FDA-Public Use
  Company Number: None

PATIENT
  Age: 67 Year
  Sex: Male
  Weight: 78.3 kg

DRUGS (7)
  1. CIMZIA [Suspect]
     Active Substance: CERTOLIZUMAB PEGOL
     Indication: RHEUMATOID ARTHRITIS
     Route: 058
     Dates: start: 20140904, end: 20180213
  2. ATORVASTATIN 20MG/D [Concomitant]
  3. FORTEO [Suspect]
     Active Substance: TERIPARATIDE
     Indication: OSTEOPOROSIS
     Route: 058
     Dates: start: 20170606, end: 20180216
  4. ASA 81MG/D [Concomitant]
  5. METHOTREXATE 15MG/WK [Concomitant]
  6. FOLIC ACID 1MG/D [Concomitant]
  7. METOPROLOL 25MG/D [Concomitant]

REACTIONS (2)
  - Laboratory test abnormal [None]
  - Lung neoplasm malignant [None]

NARRATIVE: CASE EVENT DATE: 20180316
